FAERS Safety Report 8847080 (Version 1)
Quarter: 2012Q4

REPORT INFORMATION
  Report Type: Spontaneous
  Country: PL (occurrence: None)
  Receive Date: 20121016
  Receipt Date: 20121016
  Transmission Date: 20130627
  Serious: Yes (Other)
  Sender: FDA-Public Use
  Company Number: FK201202994

PATIENT
  Age: 62 Year
  Sex: Male

DRUGS (10)
  1. DEXAMETHASONE [Suspect]
     Indication: THROMBOCYTOPENIA
     Dates: start: 200509, end: 200509
  2. ROMIPLOSTIM [Suspect]
     Route: 058
     Dates: start: 200907, end: 201012
  3. ROMIPLOSTIM [Suspect]
     Route: 058
  4. ROMIPLOSTIM [Suspect]
     Route: 058
  5. ROMIPLOSTIM [Suspect]
     Route: 058
     Dates: start: 200907, end: 201012
  6. ROMIPLOSTIM [Suspect]
     Route: 058
     Dates: start: 201012, end: 201102
  7. ROMIPLOSTIM [Suspect]
     Route: 058
  8. INSULIN (INSULIN) [Concomitant]
  9. VINCRISTINE (VINCRISTINE) [Concomitant]
  10. DANAZOL (DANAZOL) [Concomitant]

REACTIONS (6)
  - Adams-Stokes syndrome [None]
  - Bradycardia [None]
  - Hyperglycaemia [None]
  - Thrombocytosis [None]
  - Thrombocytopenia [None]
  - Disease recurrence [None]
